FAERS Safety Report 6619570-8 (Version None)
Quarter: 2010Q1

REPORT INFORMATION
  Report Type: 
  Country: None (occurrence: None)
  Receive Date: 20100218
  Receipt Date: 20100205
  Transmission Date: 20100710
  Serious: Yes (Other)
  Sender: FDA-Public Use
  Company Number: AEUSA201000038

PATIENT
  Age: 50 Year
  Sex: Male
  Weight: 97.5234 kg

DRUGS (12)
  1. GAMUNEX [Suspect]
     Indication: CHRONIC INFLAMMATORY DEMYELINATING POLYRADICULONEUROPATHY
     Dosage: 20 GM;QM;IV, 20 GM;1X;IV, 20 GM;1X;IV, 35 GM;Q3W;IV, 25 GM;QD;IV, 25 GM;QD;IV
     Route: 042
     Dates: start: 20080101, end: 20080301
  2. GAMUNEX [Suspect]
     Indication: CHRONIC INFLAMMATORY DEMYELINATING POLYRADICULONEUROPATHY
     Dosage: 20 GM;QM;IV, 20 GM;1X;IV, 20 GM;1X;IV, 35 GM;Q3W;IV, 25 GM;QD;IV, 25 GM;QD;IV
     Route: 042
     Dates: end: 20091201
  3. GAMUNEX [Suspect]
     Indication: CHRONIC INFLAMMATORY DEMYELINATING POLYRADICULONEUROPATHY
     Dosage: 20 GM;QM;IV, 20 GM;1X;IV, 20 GM;1X;IV, 35 GM;Q3W;IV, 25 GM;QD;IV, 25 GM;QD;IV
     Route: 042
     Dates: start: 20100112, end: 20100112
  4. GAMUNEX [Suspect]
     Indication: CHRONIC INFLAMMATORY DEMYELINATING POLYRADICULONEUROPATHY
     Dosage: 20 GM;QM;IV, 20 GM;1X;IV, 20 GM;1X;IV, 35 GM;Q3W;IV, 25 GM;QD;IV, 25 GM;QD;IV
     Route: 042
     Dates: start: 20100114, end: 20100114
  5. GAMUNEX [Suspect]
     Indication: CHRONIC INFLAMMATORY DEMYELINATING POLYRADICULONEUROPATHY
     Dosage: 20 GM;QM;IV, 20 GM;1X;IV, 20 GM;1X;IV, 35 GM;Q3W;IV, 25 GM;QD;IV, 25 GM;QD;IV
     Route: 042
     Dates: start: 20080401
  6. GAMUNEX [Suspect]
     Indication: CHRONIC INFLAMMATORY DEMYELINATING POLYRADICULONEUROPATHY
     Dosage: 20 GM;QM;IV, 20 GM;1X;IV, 20 GM;1X;IV, 35 GM;Q3W;IV, 25 GM;QD;IV, 25 GM;QD;IV
     Route: 042
     Dates: start: 20100202
  7. GAMUNEX [Suspect]
  8. GAMUNEX [Suspect]
  9. SOLU-CORTEF [Concomitant]
  10. ATIVAN [Concomitant]
  11. BENADRYL [Concomitant]
  12. TYLENOL (CAPLET) [Concomitant]

REACTIONS (10)
  - BLOOD PRESSURE INCREASED [None]
  - CHEST DISCOMFORT [None]
  - DIZZINESS [None]
  - DYSPNOEA [None]
  - EXTRASYSTOLES [None]
  - HEART RATE INCREASED [None]
  - INFUSION RELATED REACTION [None]
  - PALLOR [None]
  - PALPITATIONS [None]
  - TREMOR [None]
